FAERS Safety Report 7971852-3 (Version None)
Quarter: 2011Q4

REPORT INFORMATION
  Report Type: 
  Country: None (occurrence: None)
  Receive Date: 20111212
  Receipt Date: 20111208
  Transmission Date: 20120403
  Serious: Yes (Life-Threatening, Hospitalization, Other)
  Sender: FDA-Public Use
  Company Number: JP-ABBOTT-11P-087-0850911-00

PATIENT
  Sex: Female
  Weight: 50.6 kg

DRUGS (11)
  1. ADALIMUMAB [Suspect]
     Dates: start: 20110218, end: 20110304
  2. ADALIMUMAB [Suspect]
     Dates: start: 20101217, end: 20101217
  3. RABEPRAZOLE SODIUM [Concomitant]
     Indication: PROPHYLAXIS AGAINST GASTROINTESTINAL ULCER
     Route: 048
  4. PREDNISOLONE [Concomitant]
     Dosage: DAILY DOSE: 10MG
     Dates: start: 20101203
  5. PREDNISOLONE [Concomitant]
     Indication: RHEUMATOID ARTHRITIS
     Route: 048
     Dates: start: 20101217
  6. ADALIMUMAB [Suspect]
     Indication: RHEUMATOID ARTHRITIS
     Route: 058
     Dates: start: 20101105, end: 20101216
  7. INDAPAMIDE [Concomitant]
     Indication: RENAL FAILURE
     Route: 048
     Dates: end: 20110317
  8. TERGURIDE [Concomitant]
     Indication: PITUITARY TUMOUR BENIGN
     Route: 048
  9. PREDNISOLONE [Concomitant]
     Dosage: DAILY DOSE: 1MG
     Dates: start: 20100501
  10. CANDESARTAN CILEXETIL [Concomitant]
     Indication: HYPERTENSION
     Route: 048
     Dates: end: 20110314
  11. CARVEDILOL [Concomitant]
     Indication: HYPERTENSION
     Route: 048
     Dates: end: 20110314

REACTIONS (16)
  - BLOOD CREATININE INCREASED [None]
  - PURPURA [None]
  - PLATELET COUNT DECREASED [None]
  - MICROSCOPIC POLYANGIITIS [None]
  - RALES [None]
  - PLEURAL EFFUSION [None]
  - ARTHRALGIA [None]
  - CARDIAC MURMUR [None]
  - RENAL FAILURE CHRONIC [None]
  - HAEMATURIA [None]
  - PETECHIAE [None]
  - OEDEMA [None]
  - OEDEMA PERIPHERAL [None]
  - ANTI-GLOMERULAR BASEMENT MEMBRANE ANTIBODY POSITIVE [None]
  - DIALYSIS [None]
  - LEUKOCYTOCLASTIC VASCULITIS [None]
